FAERS Safety Report 4887501-7 (Version None)
Quarter: 2006Q1

REPORT INFORMATION
  Report Type: 
  Country: None (occurrence: None)
  Receive Date: 20060123
  Receipt Date: 20051207
  Transmission Date: 20060701
  Serious: Yes (Disabling, Other)
  Sender: FDA-Public Use
  Company Number: 2005AP06342

PATIENT
  Age: 25552 Day
  Sex: Male
  Weight: 70 kg

DRUGS (8)
  1. ZOLADEX [Suspect]
     Indication: PROSTATE CANCER
     Route: 058
     Dates: start: 20021022, end: 20050228
  2. ZOLADEX [Suspect]
     Indication: PROSTATE CANCER
     Route: 058
     Dates: start: 20010518, end: 20020922
  3. LEUPLIN-SR [Suspect]
     Indication: PROSTATE CANCER
     Route: 058
     Dates: start: 20050501
  4. RADIOTHERAPY [Suspect]
     Indication: PROSTATE CANCER
     Dates: start: 20030822, end: 20030929
  5. HONVAN [Concomitant]
     Indication: PROSTATE CANCER
     Route: 042
     Dates: start: 20001207, end: 20001227
  6. ESTRACYT [Concomitant]
     Indication: PROSTATE CANCER
     Route: 048
     Dates: start: 20030506, end: 20030728
  7. ODYNE [Concomitant]
     Indication: PROSTATE CANCER
     Route: 048
     Dates: start: 20030729, end: 20040906
  8. CASODEX [Concomitant]
     Indication: PROSTATE CANCER
     Route: 048
     Dates: start: 20030408, end: 20030728

REACTIONS (3)
  - ACUTE MYELOID LEUKAEMIA [None]
  - INJECTION SITE HAEMORRHAGE [None]
  - PLATELET COUNT DECREASED [None]
